FAERS Safety Report 9580948 (Version 2)
Quarter: 2013Q4

REPORT INFORMATION
  Report Type: Spontaneous
  Country: US (occurrence: US)
  Receive Date: 20131002
  Receipt Date: 20131104
  Transmission Date: 20140711
  Serious: No
  Sender: FDA-Public Use
  Company Number: US-TEVA-435659USA

PATIENT
  Sex: Male

DRUGS (1)
  1. QNASL [Suspect]

REACTIONS (3)
  - Burning sensation [Unknown]
  - Nasal congestion [Unknown]
  - Drug effect decreased [Unknown]
